FAERS Safety Report 7090237-8 (Version None)
Quarter: 2010Q4

REPORT INFORMATION
  Report Type: 
  Country: None (occurrence: None)
  Receive Date: 20101104
  Receipt Date: 20101104
  Transmission Date: 20110411
  Serious: Yes (Life-Threatening, Hospitalization)
  Sender: FDA-Public Use
  Company Number: None

PATIENT
  Age: 18 Year
  Sex: Female
  Weight: 73.2 kg

DRUGS (3)
  1. ECULIZUMAB IV [Suspect]
     Indication: NEUROMYELITIS OPTICA
     Dosage: 900 MG EVERY 2 WEEKS IV
     Route: 042
  2. VITAMIN D [Concomitant]
  3. SENNA [Concomitant]

REACTIONS (2)
  - MENINGITIS [None]
  - SEPSIS [None]
